FAERS Safety Report 11183421 (Version 3)
Quarter: 2015Q3

REPORT INFORMATION
  Report Type: Spontaneous
  Country: JP (occurrence: JP)
  Receive Date: 20150612
  Receipt Date: 20150710
  Transmission Date: 20151125
  Serious: Yes (Other)
  Sender: FDA-Public Use
  Company Number: JP-ORION CORPORATION ORION PHARMA-ENT 2015-0919

PATIENT
  Age: 81 Year
  Sex: Male

DRUGS (6)
  1. COMTAN [Suspect]
     Active Substance: ENTACAPONE
     Indication: PARKINSON^S DISEASE
     Route: 048
  2. NEODOPASTON [Concomitant]
     Active Substance: CARBIDOPA\LEVODOPA
     Route: 065
  3. MECOBALAMIN [Concomitant]
     Active Substance: METHYLCOBALAMIN
     Route: 065
  4. FP-OD [Suspect]
     Active Substance: SELEGILINE HYDROCHLORIDE
     Route: 048
  5. RABEPRAZOLE [Concomitant]
     Active Substance: RABEPRAZOLE
     Route: 065
     Dates: start: 20150522
  6. BI SIFROL [Concomitant]
     Active Substance: PRAMIPEXOLE
     Route: 065

REACTIONS (2)
  - Gastrooesophageal reflux disease [Recovered/Resolved]
  - Blood pressure increased [Unknown]

NARRATIVE: CASE EVENT DATE: 20150511
